FAERS Safety Report 10223325 (Version 1)
Quarter: 2014Q2

REPORT INFORMATION
  Report Type: Spontaneous
  Country: US (occurrence: None)
  Receive Date: 20140606
  Receipt Date: 20140606
  Transmission Date: 20141212
  Serious: Yes (Other)
  Sender: FDA-Public Use
  Company Number: None

PATIENT
  Age: 76 Year
  Sex: Male
  Weight: 98.6 kg

DRUGS (13)
  1. LEVOFLOXACIN [Suspect]
     Route: 042
     Dates: start: 20140320, end: 20140327
  2. AMLODIPINE [Concomitant]
  3. CLINDAMYCIN [Concomitant]
  4. CLOPIDOGREL (PLAVIX) [Concomitant]
  5. DORZOLAMIDE (TRUSOPT) [Concomitant]
  6. FUROSEMIDE (LASIX) [Concomitant]
  7. INSULIN NPH (HUMULIN N) [Concomitant]
  8. LISINOPRIL [Concomitant]
  9. METOCLOPRAMIDE HCL (REGLAN) [Concomitant]
  10. METOPROLOL (LOPRESSOR) [Concomitant]
  11. POLYETHYLENE GLYCOL (GLYCOLAX) [Concomitant]
  12. PRAVASTATIN (PRAVACHOL) [Concomitant]
  13. SPIRONOLACTONE (ALDACTONE) [Concomitant]

REACTIONS (1)
  - Stevens-Johnson syndrome [None]
